FAERS Safety Report 23904333 (Version 1)
Quarter: 2024Q2

REPORT INFORMATION
  Report Type: Spontaneous
  Country: DE (occurrence: DE)
  Receive Date: 20240527
  Receipt Date: 20240527
  Transmission Date: 20240715
  Serious: Yes (Other)
  Sender: FDA-Public Use
  Company Number: DE-AUROBINDO-AUR-APL-2012-01960

PATIENT
  Age: 36 Year
  Sex: Female
  Weight: 170 kg

DRUGS (2)
  1. SERTRALINE HYDROCHLORIDE [Suspect]
     Active Substance: SERTRALINE HYDROCHLORIDE
     Indication: Depression
     Dosage: 50 MG,ONCE A DAY,
     Route: 048
     Dates: start: 20120320, end: 20120408
  2. MIRTAZAPINE [Suspect]
     Active Substance: MIRTAZAPINE
     Indication: Depression
     Dosage: 7.5 MG,ONCE A DAY,
     Route: 048
     Dates: start: 20120320, end: 20120408

REACTIONS (3)
  - Dizziness [Not Recovered/Not Resolved]
  - Breast discomfort [Not Recovered/Not Resolved]
  - Diarrhoea [Not Recovered/Not Resolved]

NARRATIVE: CASE EVENT DATE: 20120409
